FAERS Safety Report 7933986-9 (Version None)
Quarter: 2011Q4

REPORT INFORMATION
  Report Type: 
  Country: None (occurrence: None)
  Receive Date: 20111116
  Receipt Date: 20111101
  Transmission Date: 20120403
  Serious: Yes (Hospitalization)
  Sender: FDA-Public Use
  Company Number: B0762071A

PATIENT
  Age: 20 Year
  Sex: Female

DRUGS (3)
  1. FLUTICASONE PROPIONATE/SALMETEROL [Concomitant]
  2. MONTELUKAST SODIUM [Concomitant]
  3. ALBUTEROL SULFATE [Suspect]
     Indication: PRODUCT USED FOR UNKNOWN INDICATION

REACTIONS (6)
  - DYSPNOEA [None]
  - TACHYPNOEA [None]
  - LACTIC ACIDOSIS [None]
  - HYPOVENTILATION [None]
  - TACHYCARDIA [None]
  - WHEEZING [None]
